FAERS Safety Report 25963808 (Version 1)
Quarter: 2025Q4

REPORT INFORMATION
  Report Type: Report from Study
  Country: US (occurrence: US)
  Receive Date: 20251027
  Receipt Date: 20251027
  Transmission Date: 20260117
  Serious: Yes (Life-Threatening, Hospitalization)
  Sender: TEVA
  Company Number: US-TEVA-VS-3384617

PATIENT
  Age: 27 Year
  Sex: Male

DRUGS (9)
  1. FENTANYL [Suspect]
     Active Substance: FENTANYL
     Indication: Intracranial pressure increased
     Dosage: DRIP
     Route: 065
  2. FENTANYL [Suspect]
     Active Substance: FENTANYL
     Indication: Intracranial pressure increased
     Dosage: DRIP
     Route: 065
  3. PROPOFOL [Suspect]
     Active Substance: PROPOFOL
     Indication: Intracranial pressure increased
     Dosage: DRIP
     Route: 065
  4. PROPOFOL [Suspect]
     Active Substance: PROPOFOL
     Indication: Intracranial pressure increased
     Dosage: DRIP
     Route: 065
  5. PENTOBARBITAL [Suspect]
     Active Substance: PENTOBARBITAL
     Indication: Intracranial pressure increased
     Dosage: LOW-DOSE
     Route: 065
  6. MIDAZOLAM HYDROCHLORIDE [Suspect]
     Active Substance: MIDAZOLAM HYDROCHLORIDE
     Indication: Intracranial pressure increased
     Dosage: DRIP
     Route: 065
  7. MIDAZOLAM HYDROCHLORIDE [Suspect]
     Active Substance: MIDAZOLAM HYDROCHLORIDE
     Indication: Intracranial pressure increased
     Dosage: DRIP
     Route: 065
  8. SODIUM CHLORIDE [Suspect]
     Active Substance: SODIUM CHLORIDE
     Indication: Intracranial pressure increased
     Dosage: DRIP; INTERMITTENT BOLUSES
     Route: 065
  9. ATROPINE [Suspect]
     Active Substance: ATROPINE
     Indication: Shock
     Dosage: INTERMITTENT ATROPINE PUSHES
     Route: 065

REACTIONS (1)
  - Drug ineffective [Unknown]
